FAERS Safety Report 13736386 (Version 1)
Quarter: 2017Q3

REPORT INFORMATION
  Report Type: Report from Study
  Country: ES (occurrence: ES)
  Receive Date: 20170710
  Receipt Date: 20170710
  Transmission Date: 20171127
  Serious: Yes (Death, Other)
  Sender: FDA-Public Use
  Company Number: ES-ROCHE-1957152

PATIENT

DRUGS (7)
  1. LEDIPASVIR [Suspect]
     Active Substance: LEDIPASVIR
     Indication: HEPATITIS C
     Route: 065
  2. DASABUVIR [Suspect]
     Active Substance: DASABUVIR
     Indication: HEPATITIS C
     Route: 065
  3. OMBITASVIR [Suspect]
     Active Substance: OMBITASVIR
     Indication: HEPATITIS C
     Route: 065
  4. PARITAPREVIR [Suspect]
     Active Substance: PARITAPREVIR
     Indication: HEPATITIS C
     Route: 065
  5. RITONAVIR. [Suspect]
     Active Substance: RITONAVIR
     Indication: HEPATITIS C
     Route: 065
  6. RIBAVIRIN. [Suspect]
     Active Substance: RIBAVIRIN
     Indication: HEPATITIS C
     Route: 065
  7. SOFOSBUVIR [Suspect]
     Active Substance: SOFOSBUVIR
     Indication: HEPATITIS C
     Route: 065

REACTIONS (24)
  - Infection [Fatal]
  - Lung neoplasm malignant [Fatal]
  - Acute pulmonary oedema [Fatal]
  - Death [Fatal]
  - Craniocerebral injury [Fatal]
  - Ascites [Fatal]
  - Hepatic encephalopathy [Unknown]
  - Mental disorder [Unknown]
  - Renal failure [Unknown]
  - Lactic acidosis [Fatal]
  - Acute leukaemia [Fatal]
  - Cardiovascular disorder [Unknown]
  - Metabolic disorder [Unknown]
  - Bleeding varicose vein [Fatal]
  - Complicated fracture [Fatal]
  - Arrhythmia [Fatal]
  - Anaemia [Unknown]
  - Acute hepatic failure [Fatal]
  - Hepatocellular carcinoma [Fatal]
  - Nervous system disorder [Unknown]
  - Skin disorder [Unknown]
  - Fatigue [Unknown]
  - Neoplasm [Unknown]
  - Gastrointestinal disorder [Unknown]
